FAERS Safety Report 6380970-5 (Version None)
Quarter: 2009Q3

REPORT INFORMATION
  Report Type: 
  Country: None (occurrence: None)
  Receive Date: 20090925
  Receipt Date: 20090925
  Transmission Date: 20100115
  Serious: No
  Sender: FDA-Public Use
  Company Number: None

PATIENT
  Age: 26 Year
  Sex: Male
  Weight: 65.7716 kg

DRUGS (4)
  1. ZICAM ZICAM GLUCONICUMZICAM LLC [Suspect]
     Indication: NASAL CONGESTION
     Dosage: SWAB 3X/DAY NASAL A FEW TIMES DAILY
     Route: 045
     Dates: start: 20090210, end: 20090216
  2. ZICAM ZICAM GLUCONICUMZICAM LLC [Suspect]
     Indication: NASOPHARYNGITIS
     Dosage: SWAB 3X/DAY NASAL A FEW TIMES DAILY
     Route: 045
     Dates: start: 20090210, end: 20090216
  3. ZICAM ZICAM GLUCONICUMZICAM LLC [Suspect]
     Indication: NASAL CONGESTION
     Dosage: SWAB 3X/DAY NASAL A FEW TIMES DAILY
     Route: 045
     Dates: start: 20090501, end: 20090516
  4. ZICAM ZICAM GLUCONICUMZICAM LLC [Suspect]
     Indication: NASOPHARYNGITIS
     Dosage: SWAB 3X/DAY NASAL A FEW TIMES DAILY
     Route: 045
     Dates: start: 20090501, end: 20090516

REACTIONS (1)
  - ANOSMIA [None]
